FAERS Safety Report 24346939 (Version 1)
Quarter: 2024Q3

REPORT INFORMATION
  Report Type: Report from Study
  Country: US (occurrence: US)
  Receive Date: 20240921
  Receipt Date: 20240921
  Transmission Date: 20241016
  Serious: Yes (Death)
  Sender: ROCHE
  Company Number: US-ROCHE-10000082504

PATIENT
  Age: 85 Year
  Sex: Male

DRUGS (1)
  1. HERCEPTIN [Suspect]
     Active Substance: TRASTUZUMAB
     Indication: Cholangiocarcinoma
     Dosage: INFUSE 4MG/KG (280MG) INTRAVENOUSLY EVERY 2 WEEK(S)
     Route: 042
     Dates: end: 20210908

REACTIONS (2)
  - Death [Fatal]
  - Off label use [Unknown]
